FAERS Safety Report 6198483-2 (Version None)
Quarter: 2009Q2

REPORT INFORMATION
  Report Type: 
  Country: None (occurrence: None)
  Receive Date: 20090521
  Receipt Date: 20090513
  Transmission Date: 20091009
  Serious: Yes (Other)
  Sender: FDA-Public Use
  Company Number: PHHY2009BR18714

PATIENT
  Sex: Female
  Weight: 50 kg

DRUGS (3)
  1. TRILEPTAL [Suspect]
     Indication: LOSS OF CONSCIOUSNESS
     Dosage: 2 TABLET/DAY
     Route: 048
     Dates: start: 19940101
  2. ADELFAN [Concomitant]
     Dosage: 0.25
  3. RESERPINE [Concomitant]
     Dosage: UNK
     Dates: end: 20050101

REACTIONS (21)
  - ALOPECIA [None]
  - ASTHENIA [None]
  - BLOOD PRESSURE ABNORMAL [None]
  - BURNING SENSATION [None]
  - DISTURBANCE IN ATTENTION [None]
  - DIZZINESS [None]
  - DYSPEPSIA [None]
  - HAIR TEXTURE ABNORMAL [None]
  - HEAD INJURY [None]
  - HEADACHE [None]
  - INFLAMMATION [None]
  - LOSS OF CONSCIOUSNESS [None]
  - MALAISE [None]
  - MEMORY IMPAIRMENT [None]
  - SOMNOLENCE [None]
  - SWELLING [None]
  - SYNCOPE [None]
  - TENSION [None]
  - VEIN DISORDER [None]
  - VENOUS INJURY [None]
  - VOMITING [None]
